FAERS Safety Report 11084416 (Version 9)
Quarter: 2024Q3

REPORT INFORMATION
  Report Type: Spontaneous
  Country: PT (occurrence: PT)
  Receive Date: 20150502
  Receipt Date: 20240906
  Transmission Date: 20241017
  Serious: Yes (Hospitalization, Other)
  Sender: AUROBINDO
  Company Number: PT-AUROBINDO-AUR-APL-2015-03877

PATIENT
  Age: 68 Year
  Sex: Female

DRUGS (41)
  1. ACECLOFENAC [Interacting]
     Active Substance: ACECLOFENAC
     Indication: Product used for unknown indication
     Dosage: 100 MILLIGRAM, ONCE A DAY
     Route: 048
  2. ACECLOFENAC [Interacting]
     Active Substance: ACECLOFENAC
     Dosage: 40 MILLIGRAM, ONCE A DAY
     Route: 065
  3. ALFUZOSIN [Interacting]
     Active Substance: ALFUZOSIN
     Indication: Product used for unknown indication
     Dosage: 5 MILLIGRAM, ONCE A DAY
     Route: 048
  4. ALPRAZOLAM [Interacting]
     Active Substance: ALPRAZOLAM
     Indication: Product used for unknown indication
     Dosage: 1 MILLIGRAM, DAILY
     Route: 048
  5. BETAHISTINE [Interacting]
     Active Substance: BETAHISTINE
     Indication: Product used for unknown indication
     Dosage: 16 MILLIGRAM, ONCE A DAY
     Route: 048
  6. CELECOXIB [Interacting]
     Active Substance: CELECOXIB
     Indication: Product used for unknown indication
     Dosage: 200 MILLIGRAM, ONCE A DAY
     Route: 048
  7. DEFLAZACORT [Interacting]
     Active Substance: DEFLAZACORT
     Indication: Product used for unknown indication
     Dosage: 3 MILLIGRAM, ONCE A DAY
     Route: 048
  8. ETORICOXIB [Interacting]
     Active Substance: ETORICOXIB
     Indication: Product used for unknown indication
     Dosage: 90 MILLIGRAM, ONCE A DAY
     Route: 065
  9. GLUCOSAMINE [Interacting]
     Active Substance: GLUCOSAMINE
     Indication: Product used for unknown indication
     Dosage: 1500 MILLIGRAM, ONCE A DAY
     Route: 048
  10. GLUCOSAMINE [Interacting]
     Active Substance: GLUCOSAMINE
     Dosage: 600 MILLIGRAM, ONCE A DAY
     Route: 048
  11. GLUCOSAMINE [Interacting]
     Active Substance: GLUCOSAMINE
     Dosage: 40 MILLIGRAM, ONCE A DAY
     Route: 048
  12. GLUCOSAMINE [Interacting]
     Active Substance: GLUCOSAMINE
     Dosage: 5 MILLIGRAM, ONCE A DAY
     Route: 048
  13. GLUCOSAMINE [Interacting]
     Active Substance: GLUCOSAMINE
     Dosage: 4 MILLIGRAM, ONCE A DAY
     Route: 048
  14. GLUCOSAMINE [Interacting]
     Active Substance: GLUCOSAMINE
     Dosage: 100 MILLIGRAM, ONCE A DAY
     Route: 048
  15. GLUCOSAMINE [Interacting]
     Active Substance: GLUCOSAMINE
     Dosage: 16 MILLIGRAM, ONCE A DAY
     Route: 048
  16. GLUCOSAMINE [Interacting]
     Active Substance: GLUCOSAMINE
     Dosage: 20 MILLIGRAM, ONCE A DAY
     Route: 048
  17. GLUCOSAMINE [Interacting]
     Active Substance: GLUCOSAMINE
     Dosage: 3 MILLIGRAM, ONCE A DAY
     Route: 048
  18. GLUCOSAMINE [Interacting]
     Active Substance: GLUCOSAMINE
     Dosage: 40 MILLIGRAM, ONCE A DAY
     Route: 048
  19. GLUCOSAMINE [Interacting]
     Active Substance: GLUCOSAMINE
     Dosage: 2.5 MILLIGRAM, ONCE A DAY
     Route: 048
  20. GLUCOSAMINE [Interacting]
     Active Substance: GLUCOSAMINE
     Dosage: 1 MILLIGRAM, ONCE A DAY
     Route: 048
  21. GLUCOSAMINE [Interacting]
     Active Substance: GLUCOSAMINE
     Dosage: 40 MILLIGRAM, ONCE A DAY
     Route: 048
  22. GLUCOSAMINE [Interacting]
     Active Substance: GLUCOSAMINE
     Dosage: 90 MILLIGRAM, ONCE A DAY
     Route: 048
  23. GLUCOSAMINE [Interacting]
     Active Substance: GLUCOSAMINE
     Dosage: 150 MILLIGRAM, ONCE A DAY
     Route: 048
  24. GLUCOSAMINE [Interacting]
     Active Substance: GLUCOSAMINE
     Dosage: 5 MILLIGRAM, ONCE A DAY
     Route: 048
  25. GLUCOSAMINE [Interacting]
     Active Substance: GLUCOSAMINE
     Dosage: 20 MILLIGRAM, ONCE A DAY
     Route: 048
  26. GLUCOSAMINE [Interacting]
     Active Substance: GLUCOSAMINE
     Dosage: 90 MILLIGRAM, ONCE A DAY
     Route: 048
  27. GLUCOSAMINE [Interacting]
     Active Substance: GLUCOSAMINE
     Dosage: 200 MILLIGRAM, ONCE A DAY
     Route: 048
  28. OMEPRAZOLE [Interacting]
     Active Substance: OMEPRAZOLE
     Indication: Product used for unknown indication
     Dosage: 20 MILLIGRAM, ONCE A DAY
     Route: 048
  29. PAROXETINE [Interacting]
     Active Substance: PAROXETINE
     Indication: Product used for unknown indication
     Dosage: 90 MILLIGRAM, DAILY
     Route: 065
  30. ACETAMINOPHEN [Interacting]
     Active Substance: ACETAMINOPHEN
     Indication: Product used for unknown indication
     Dosage: UNK
     Route: 065
  31. PROPRANOLOL [Interacting]
     Active Substance: PROPRANOLOL HYDROCHLORIDE
     Indication: Product used for unknown indication
     Dosage: 40 MG, ONCE A DAY
     Route: 048
  32. SIMVASTATIN [Interacting]
     Active Substance: SIMVASTATIN
     Indication: Product used for unknown indication
     Dosage: 40 MILLIGRAM, ONCE A DAY,TWO PACKAGES OF DIFFERENT
     Route: 048
  33. TRAZODONE [Interacting]
     Active Substance: TRAZODONE HYDROCHLORIDE
     Indication: Product used for unknown indication
     Dosage: 150 MILLIGRAM, DAILY
     Route: 048
  34. TRIMETAZIDINE [Interacting]
     Active Substance: TRIMETAZIDINE
     Indication: Product used for unknown indication
     Dosage: 20 MILLIGRAM, ONCE A DAY
     Route: 048
  35. CHLORDIAZEPOXIDE [Interacting]
     Active Substance: CHLORDIAZEPOXIDE
     Indication: Product used for unknown indication
     Dosage: 5 MILLIGRAM, DAILY
     Route: 065
  36. CLIDINIUM BROMIDE [Interacting]
     Active Substance: CLIDINIUM BROMIDE
     Indication: Product used for unknown indication
     Dosage: 2.5 MILLIGRAM, ONCE A DAY
     Route: 048
  37. CITICOLINE [Interacting]
     Active Substance: CITICOLINE
     Indication: Product used for unknown indication
     Dosage: 600 MILLIGRAM, ONCE A DAY
     Route: 048
  38. OTILONIUM BROMIDE [Interacting]
     Active Substance: OTILONIUM BROMIDE
     Indication: Product used for unknown indication
     Dosage: 40 MILLIGRAM, ONCE A DAY
     Route: 048
  39. TRIHEXYPHENIDYL [Interacting]
     Active Substance: TRIHEXYPHENIDYL
     Indication: Product used for unknown indication
     Dosage: 4 MILLIGRAM, DAILY
     Route: 048
  40. CHLORDIAZEPOXIDE [Interacting]
     Active Substance: CHLORDIAZEPOXIDE
     Indication: Product used for unknown indication
     Dosage: 5 MILLIGRAM, ONCE A DAY
     Route: 048
  41. ARCOXIA [Interacting]
     Active Substance: ETORICOXIB
     Indication: Product used for unknown indication
     Dosage: 90 MILLIGRAM, ONCE A DAY
     Route: 048

REACTIONS (17)
  - Dementia [Recovered/Resolved]
  - Cognitive disorder [Recovered/Resolved]
  - Ataxia [Recovered/Resolved]
  - Apraxia [Recovered/Resolved]
  - Myoclonus [Recovered/Resolved]
  - Disorientation [Recovered/Resolved]
  - Bradyphrenia [Recovered/Resolved]
  - Confusional state [Recovered/Resolved]
  - Hyperreflexia [Recovered/Resolved]
  - Perseveration [Recovered/Resolved]
  - Loss of personal independence in daily activities [Recovered/Resolved]
  - Drug interaction [Recovered/Resolved]
  - Gait disturbance [Recovered/Resolved]
  - Disturbance in attention [Recovering/Resolving]
  - Abnormal behaviour [Recovering/Resolving]
  - Memory impairment [Recovering/Resolving]
  - Overdose [Recovered/Resolved]
